FAERS Safety Report 18752453 (Version 1)
Quarter: 2021Q1

REPORT INFORMATION
  Report Type: Spontaneous
  Country: SA (occurrence: SA)
  Receive Date: 20210118
  Receipt Date: 20210118
  Transmission Date: 20210419
  Serious: Yes (Hospitalization)
  Sender: FDA-Public Use
  Company Number: SA-LUPIN PHARMACEUTICALS INC.-2021-00267

PATIENT
  Age: 55 Year
  Sex: Female

DRUGS (3)
  1. CALCITONIN [Suspect]
     Active Substance: CALCITONIN
     Indication: HYPERCALCAEMIA
     Dosage: 250 MICROGRAM (SHE RECEIVED CALCITONIN 250MCG/DOSE)
     Route: 058
  2. CINACALCET. [Suspect]
     Active Substance: CINACALCET
     Indication: HYPERCALCAEMIA
     Dosage: 60 MILLIGRAM, QD
     Route: 065
  3. ZOLEDRONIC ACID [Suspect]
     Active Substance: ZOLEDRONIC ACID
     Indication: HYPERCALCAEMIA
     Dosage: 4 MILLIGRAM (SHE RECEIVED A SINGLE DOSE OF ZOLEDRONIC?ACID)
     Route: 042

REACTIONS (1)
  - Drug ineffective [Unknown]
